FAERS Safety Report 15831753 (Version 1)
Quarter: 2018Q4

REPORT INFORMATION
  Report Type: Spontaneous
  Country: US (occurrence: US)
  Receive Date: 20181218
  Receipt Date: 20181218
  Transmission Date: 20190205
  Serious: Yes (Hospitalization)
  Sender: FDA-Public Use
  Company Number: None

PATIENT
  Age: 38 Year
  Sex: Female
  Weight: 66.7 kg

DRUGS (4)
  1. CARBOPLATIN. [Suspect]
     Active Substance: CARBOPLATIN
  2. PERTUZUMAB. [Suspect]
     Active Substance: PERTUZUMAB
  3. TRASTUZUMAB. [Suspect]
     Active Substance: TRASTUZUMAB
  4. PACLITAXEL. [Suspect]
     Active Substance: PACLITAXEL

REACTIONS (1)
  - Kidney infection [None]

NARRATIVE: CASE EVENT DATE: 20181031
